FAERS Safety Report 10509971 (Version 1)
Quarter: 2014Q4

REPORT INFORMATION
  Report Type: Spontaneous
  Country: US (occurrence: None)
  Receive Date: 20141008
  Receipt Date: 20141008
  Transmission Date: 20150528
  Serious: Yes (Death, Hospitalization)
  Sender: FDA-Public Use
  Company Number: DAV-AE-DIL-14-02

PATIENT
  Age: 47 Year
  Sex: Female

DRUGS (1)
  1. DILTIAZEM [Suspect]
     Active Substance: DILTIAZEM
     Indication: PRODUCT USED FOR UNKNOWN INDICATION

REACTIONS (11)
  - Abdominal compartment syndrome [None]
  - Soft tissue necrosis [None]
  - Hypotension [None]
  - Peripheral ischaemia [None]
  - Cardiac arrest [None]
  - Respiratory failure [None]
  - Bradycardia [None]
  - Atrioventricular block complete [None]
  - Acidosis [None]
  - Toxicity to various agents [None]
  - Pulseless electrical activity [None]
